FAERS Safety Report 9219123 (Version 4)
Quarter: 2013Q2

REPORT INFORMATION
  Report Type: Spontaneous
  Country: US (occurrence: US)
  Receive Date: 20130409
  Receipt Date: 20130521
  Transmission Date: 20140414
  Serious: No
  Sender: FDA-Public Use
  Company Number: US-VERTEX PHARMACEUTICALS INC.-2013-004483

PATIENT
  Age: 56 Year
  Sex: Female
  Weight: 95 kg

DRUGS (10)
  1. INCIVEK [Suspect]
     Indication: HEPATITIS C
     Dosage: 750 MG, TID
     Route: 048
     Dates: start: 20130401
  2. PEGASYS [Suspect]
     Indication: HEPATITIS C
     Dosage: 135 ?G, WEEKLY
     Route: 058
     Dates: start: 20130401
  3. RIBASPHERE [Suspect]
     Indication: HEPATITIS C
     Dosage: 400 MG, BID
     Route: 048
     Dates: start: 20130401
  4. PRAVASTATIN [Concomitant]
     Indication: BLOOD CHOLESTEROL INCREASED
     Dosage: 40 MG, QD
     Route: 048
     Dates: start: 201212
  5. LISINOPRIL [Concomitant]
     Dosage: 1.5 DF, QD
  6. HYDROCHLORTHIAZID [Concomitant]
     Indication: HYPERTENSION
     Dosage: 50 G, QD
  7. PLAVIX [Concomitant]
  8. HUMALOG [Concomitant]
     Indication: DIABETES MELLITUS
  9. LANTUS [Concomitant]
     Indication: DIABETES MELLITUS
  10. ACETYLSALICYLIC ACID [Concomitant]

REACTIONS (14)
  - Amnesia [Not Recovered/Not Resolved]
  - Blood glucose decreased [Not Recovered/Not Resolved]
  - Blood pressure fluctuation [Unknown]
  - Fall [Unknown]
  - Contusion [Unknown]
  - Insomnia [Not Recovered/Not Resolved]
  - Vision blurred [Unknown]
  - Paraesthesia [Not Recovered/Not Resolved]
  - Decreased appetite [Not Recovered/Not Resolved]
  - Feeling hot [Unknown]
  - Abdominal distension [Not Recovered/Not Resolved]
  - Rash macular [Not Recovered/Not Resolved]
  - Pruritus [Not Recovered/Not Resolved]
  - Diarrhoea [Not Recovered/Not Resolved]
